FAERS Safety Report 7122657-7 (Version None)
Quarter: 2010Q4

REPORT INFORMATION
  Report Type: 
  Country: None (occurrence: None)
  Receive Date: 20101124
  Receipt Date: 20101116
  Transmission Date: 20110411
  Serious: Yes (Death, Hospitalization)
  Sender: FDA-Public Use
  Company Number: NL-BAYER-201047270GPV

PATIENT
  Age: 50 Year
  Sex: Female

DRUGS (6)
  1. SORAFENIB [Suspect]
     Indication: NON-SMALL CELL LUNG CANCER
     Route: 048
     Dates: start: 20100929, end: 20101008
  2. DICLOFENAC SODIUM [Suspect]
     Indication: NON-SMALL CELL LUNG CANCER
     Dosage: TOTAL DAILY DOSE: 200 MG
  3. GABAPENTINE [Concomitant]
     Dosage: TOTAL DAILY DOSE: 1800 MG
  4. SYMORON [Concomitant]
     Dosage: TOTAL DAILY DOSE: 5 MG
  5. LORAZEPAM [Concomitant]
     Dosage: TOTAL DAILY DOSE: 1 MG
  6. ACTIQ [Concomitant]
     Dosage: 1-6 TIMES 800

REACTIONS (7)
  - DECREASED APPETITE [None]
  - FATIGUE [None]
  - HYPERKALAEMIA [None]
  - HYPONATRAEMIA [None]
  - MALAISE [None]
  - PAIN [None]
  - SUDDEN DEATH [None]
